FAERS Safety Report 23080064 (Version 4)
Quarter: 2023Q4

REPORT INFORMATION
  Report Type: Spontaneous
  Country: MX (occurrence: MX)
  Receive Date: 20231018
  Receipt Date: 20231116
  Transmission Date: 20240110
  Serious: Yes (Other)
  Sender: FDA-Public Use
  Company Number: MX-MLMSERVICE-20231004-4583811-1

PATIENT
  Age: 4 Decade
  Sex: Male

DRUGS (9)
  1. DOCETAXEL [Suspect]
     Active Substance: DOCETAXEL\DOCETAXEL ANHYDROUS
     Indication: Cardiac neoplasm malignant
     Dosage: 100 MILLIGRAM, CYCLICAL (TWO CONSECUTIVE DAYS EVERY 2WEEKS)
     Route: 065
  2. DOCETAXEL [Suspect]
     Active Substance: DOCETAXEL\DOCETAXEL ANHYDROUS
     Indication: Angiosarcoma metastatic
     Dosage: 120 MILLIGRAM, CYCLICAL
     Route: 065
  3. BEVACIZUMAB [Suspect]
     Active Substance: BEVACIZUMAB
     Indication: Angiosarcoma metastatic
     Dosage: 800 MILLIGRAM, CYCLICAL (TWO CONSECUTIVE DAYS EVERY 2WEEKS)
     Route: 065
  4. BEVACIZUMAB [Suspect]
     Active Substance: BEVACIZUMAB
     Indication: Cardiac neoplasm malignant
  5. GEMCITABINE [Suspect]
     Active Substance: GEMCITABINE
     Indication: Cardiac neoplasm malignant
     Dosage: 1400 MILLIGRAM, CYCLICAL (TWO CONSECUTIVE DAYS EVERY 2WEEKS)
     Route: 065
  6. ESOMEPRAZOLE [Concomitant]
     Active Substance: ESOMEPRAZOLE
     Indication: Product used for unknown indication
     Dosage: UNK
     Route: 065
  7. LEVETIRACETAM [Concomitant]
     Active Substance: LEVETIRACETAM
     Indication: Generalised tonic-clonic seizure
     Dosage: 1500 MILLIGRAM, TWO TIMES A DAY
     Route: 065
  8. PHENYTOIN [Concomitant]
     Active Substance: PHENYTOIN
     Indication: Generalised tonic-clonic seizure
     Dosage: 100 MILLIGRAM, 3 TIMES A DAY
     Route: 065
  9. VALPROATE MAGNESIUM [Concomitant]
     Active Substance: VALPROATE MAGNESIUM
     Indication: Generalised tonic-clonic seizure
     Dosage: 1200 MILLIGRAM, TWO TIMES A DAY
     Route: 065

REACTIONS (8)
  - Depression [Unknown]
  - Taste disorder [Unknown]
  - Pain [Recovered/Resolved]
  - Diarrhoea [Unknown]
  - Nausea [Not Recovered/Not Resolved]
  - Headache [Recovered/Resolved]
  - Fatigue [Not Recovered/Not Resolved]
  - Off label use [Unknown]
